FAERS Safety Report 21302023 (Version 3)
Quarter: 2022Q4

REPORT INFORMATION
  Report Type: Spontaneous
  Country: US (occurrence: US)
  Receive Date: 20220907
  Receipt Date: 20221201
  Transmission Date: 20230112
  Serious: Yes (Hospitalization)
  Sender: FDA-Public Use
  Company Number: US-Melinta Therapeutics, LLC-US-MLNT-22-00139

PATIENT
  Age: 45 Year
  Sex: Female
  Weight: 215.5 kg

DRUGS (33)
  1. KIMYRSA [Suspect]
     Active Substance: ORITAVANCIN DIPHOSPHATE
     Indication: Osteomyelitis
     Route: 041
     Dates: start: 20220812, end: 20220812
  2. KIMYRSA [Suspect]
     Active Substance: ORITAVANCIN DIPHOSPHATE
     Route: 041
     Dates: start: 20220818, end: 20220818
  3. KIMYRSA [Suspect]
     Active Substance: ORITAVANCIN DIPHOSPHATE
     Dosage: ORDERED DOSE: 1200 MG
     Route: 041
     Dates: start: 20220825, end: 20220825
  4. BENADRYL [Suspect]
     Active Substance: DIPHENHYDRAMINE HYDROCHLORIDE
     Indication: Premedication
     Route: 048
     Dates: start: 20220812
  5. BENADRYL [Suspect]
     Active Substance: DIPHENHYDRAMINE HYDROCHLORIDE
     Route: 048
     Dates: start: 20220818
  6. BENADRYL [Suspect]
     Active Substance: DIPHENHYDRAMINE HYDROCHLORIDE
     Route: 048
     Dates: start: 20220825
  7. BENADRYL [Suspect]
     Active Substance: DIPHENHYDRAMINE HYDROCHLORIDE
     Route: 048
     Dates: start: 20220902
  8. BENADRYL [Suspect]
     Active Substance: DIPHENHYDRAMINE HYDROCHLORIDE
     Route: 048
     Dates: start: 20220909
  9. BENADRYL [Suspect]
     Active Substance: DIPHENHYDRAMINE HYDROCHLORIDE
     Route: 048
     Dates: start: 20220916
  10. TYLENOL [Suspect]
     Active Substance: ACETAMINOPHEN
     Indication: Premedication
     Route: 048
     Dates: start: 20220812
  11. TYLENOL [Suspect]
     Active Substance: ACETAMINOPHEN
     Route: 048
     Dates: start: 20220818
  12. TYLENOL [Suspect]
     Active Substance: ACETAMINOPHEN
     Route: 048
     Dates: start: 20220825
  13. TYLENOL [Suspect]
     Active Substance: ACETAMINOPHEN
     Route: 048
     Dates: start: 20220902
  14. TYLENOL [Suspect]
     Active Substance: ACETAMINOPHEN
     Route: 048
     Dates: start: 20220909
  15. TYLENOL [Suspect]
     Active Substance: ACETAMINOPHEN
     Route: 048
     Dates: start: 20220916
  16. ACETAMINOPHEN [Concomitant]
     Active Substance: ACETAMINOPHEN
     Indication: Pyrexia
     Route: 048
     Dates: start: 20220516
  17. ACETAMINOPHEN [Concomitant]
     Active Substance: ACETAMINOPHEN
     Indication: Pain
  18. PROAIR HFA [Concomitant]
     Active Substance: ALBUTEROL SULFATE
     Indication: Wheezing
     Dosage: 2 PUFFS
     Dates: start: 20170112
  19. PROAIR HFA [Concomitant]
     Active Substance: ALBUTEROL SULFATE
     Indication: Dyspnoea
  20. ASPIRIN [Concomitant]
     Active Substance: ASPIRIN
     Indication: Product used for unknown indication
     Route: 048
  21. COMBIGAN [Concomitant]
     Active Substance: BRIMONIDINE TARTRATE\TIMOLOL MALEATE
     Indication: Product used for unknown indication
     Dosage: 0.2-0.5 % OPHTHALMIC SOLUTION, 1 DROP TO EACH EYE
     Route: 047
     Dates: start: 20201004
  22. FERROUS SULFATE [Concomitant]
     Active Substance: FERROUS SULFATE
     Indication: Product used for unknown indication
     Route: 048
     Dates: start: 20220715
  23. ATARAX [Concomitant]
     Active Substance: HYDROXYZINE HYDROCHLORIDE
     Indication: Anxiety
     Dosage: 0.5-2 TABLETS
     Dates: start: 20210824
  24. MOTRIN [Concomitant]
     Active Substance: IBUPROFEN
     Indication: Pain
     Route: 048
  25. COZAAR [Concomitant]
     Active Substance: LOSARTAN POTASSIUM
     Indication: Product used for unknown indication
     Route: 048
     Dates: start: 20220624
  26. VITAMINS [Concomitant]
     Active Substance: VITAMINS
     Indication: Product used for unknown indication
     Dosage: 1 TABLET
     Route: 048
  27. MAGNESIUM [Concomitant]
     Active Substance: MAGNESIUM
     Indication: Product used for unknown indication
     Route: 048
  28. GLUCOPHAGE [Concomitant]
     Active Substance: METFORMIN HYDROCHLORIDE
     Indication: Product used for unknown indication
     Route: 048
     Dates: start: 20220607, end: 20220908
  29. HAIR SKIN NAILS [Concomitant]
     Indication: Product used for unknown indication
     Dosage: 400-2000 MCG
     Route: 048
  30. OMEGA-3 DHA-EPA-FISH OIL [Concomitant]
     Indication: Product used for unknown indication
     Dosage: 300-1000 MCG
     Route: 048
  31. PROTONIX [Concomitant]
     Active Substance: PANTOPRAZOLE SODIUM
     Indication: Product used for unknown indication
     Route: 048
     Dates: start: 20220103
  32. ZOLOFT [Concomitant]
     Active Substance: SERTRALINE HYDROCHLORIDE
     Indication: Product used for unknown indication
     Route: 048
     Dates: start: 20220415
  33. SIMETHICONE (DIMETHICONE) [Concomitant]
     Active Substance: DIMETHICONE
     Indication: Flatulence
     Route: 048

REACTIONS (14)
  - Systemic inflammatory response syndrome [Recovered/Resolved]
  - Sepsis [Recovered/Resolved]
  - Pneumonia [Recovered/Resolved]
  - Acute respiratory failure [Recovered/Resolved]
  - Pneumonitis chemical [Recovered/Resolved]
  - Eructation [Recovered/Resolved]
  - Musculoskeletal discomfort [Recovered/Resolved]
  - Hypoxia [Recovered/Resolved]
  - Nausea [Recovered/Resolved]
  - Dyspnoea [Recovered/Resolved]
  - Infusion related reaction [Recovered/Resolved]
  - Off label use [Recovered/Resolved]
  - Multiple use of single-use product [Recovered/Resolved]
  - Incorrect dose administered [Recovered/Resolved]

NARRATIVE: CASE EVENT DATE: 20220812
